FAERS Safety Report 9001877 (Version 1)
Quarter: 2013Q1

REPORT INFORMATION
  Report Type: Spontaneous
  Country: US (occurrence: US)
  Receive Date: 20130108
  Receipt Date: 20130108
  Transmission Date: 20140127
  Serious: Yes (Hospitalization, Other)
  Sender: FDA-Public Use
  Company Number: US-ELI_LILLY_AND_COMPANY-US201201006949

PATIENT
  Age: 59 Year
  Sex: Female

DRUGS (10)
  1. BYETTA [Suspect]
     Dosage: 10 MG, BID
     Dates: end: 201109
  2. LASIX [Concomitant]
     Dosage: 40 MG, QD
  3. PREVACID [Concomitant]
     Dosage: 30 MG, QD
  4. ASPIRIN [Concomitant]
     Dosage: 81 MG, QD
  5. LISINOPRIL [Concomitant]
     Dosage: 5 MG, QD
  6. GABAPENTIN [Concomitant]
     Dosage: 300 MG, BID
  7. TRICOR [Concomitant]
     Dosage: 145 MG, QD
  8. ALPRAZOLAM [Concomitant]
     Dosage: 2 MG, EACH EVENING
  9. ENALAPRIL [Concomitant]
     Dosage: 5 MG, QD
  10. METFORMIN [Concomitant]
     Dosage: 850 MG, BID

REACTIONS (2)
  - Pancreatitis chronic [Unknown]
  - Pancreatitis acute [Recovering/Resolving]
